FAERS Safety Report 26069044 (Version 1)
Quarter: 2025Q4

REPORT INFORMATION
  Report Type: Spontaneous
  Country: JP (occurrence: JP)
  Receive Date: 20251120
  Receipt Date: 20251120
  Transmission Date: 20260118
  Serious: Yes (Hospitalization)
  Sender: MERCK SHARP & DOHME LLC
  Company Number: JP-009507513-2351348

PATIENT
  Age: 49 Year
  Sex: Female
  Weight: 51.4 kg

DRUGS (8)
  1. NOXAFIL [Suspect]
     Active Substance: POSACONAZOLE
     Indication: Mucormycosis
     Dosage: STRENGTH: 100MG; 3 TABLETS, TWICE DAILY
     Route: 048
     Dates: start: 20250625, end: 20250625
  2. NOXAFIL [Suspect]
     Active Substance: POSACONAZOLE
     Indication: Mucormycosis
     Dosage: STRENGTH: 100MG; 3 TABLETS, ONCE DAILY
     Route: 048
     Dates: start: 20250626, end: 20251017
  3. Prednisolone tablet 1mg [Concomitant]
     Dosage: STRENGTH: 1MG; 2 TABLET FORM, ONCE DAILY AFTER BREAKFAST
     Route: 048
  4. Pitavastatin Calcium tablet 1mg [Concomitant]
     Dosage: STRENGTH: 1MG; 1 TABLET FORM, ONCE DAILY AFTER BREAKFAST
     Route: 048
  5. Lansoprazole OD tablet 15mg [Concomitant]
     Dosage: STRENGTH: 15MG; 1 TABLET FORM, ONCE DAILY AFTER BREAKFAST
     Route: 048
  6. Plaquenil tablet 200mg [Concomitant]
     Dosage: STRENGTH: 200 MG; 1 TABLET FORM, ONCE DAILY AFTER BREAKFAST
     Route: 048
  7. Bonalon Tablet 35mg [Concomitant]
     Dosage: STRENGTH: 35MG; 1 TABLET FORM, ONCE DAILY WHEN GETTING UP
     Route: 048
  8. SELENICA-R Tablets 200mg [Concomitant]
     Dosage: STRENGTH: 200MG; 1 TABLET FORM, ONCE DAILY AFTER DINNER
     Route: 048

REACTIONS (1)
  - Splenic infarction [Recovering/Resolving]

NARRATIVE: CASE EVENT DATE: 20251015
